FAERS Safety Report 18556755 (Version 2)
Quarter: 2021Q1

REPORT INFORMATION
  Report Type: Spontaneous
  Country: US (occurrence: US)
  Receive Date: 20201128
  Receipt Date: 20210105
  Transmission Date: 20210419
  Serious: Yes (Death, Hospitalization)
  Sender: FDA-Public Use
  Company Number: US-TEVA-2020-US-1851319

PATIENT
  Age: 66 Year
  Sex: Female

DRUGS (9)
  1. LISINOPRIL. [Concomitant]
     Active Substance: LISINOPRIL
     Indication: CARDIOMYOPATHY
     Dosage: 2.5 MILLIGRAM DAILY;
     Route: 065
  2. RITUXIMAB. [Concomitant]
     Active Substance: RITUXIMAB
     Indication: DIFFUSE LARGE B-CELL LYMPHOMA
     Dosage: AS PART OF RCHOP REGIMEN; RECEIVED 10 CYCLES
     Route: 065
  3. VINCRISTINE [Concomitant]
     Active Substance: VINCRISTINE
     Indication: DIFFUSE LARGE B-CELL LYMPHOMA
     Dosage: AS PART OF RCHOP REGIMEN; RECEIVED 10 CYCLES
     Route: 065
  4. YESCARTA [Suspect]
     Active Substance: AXICABTAGENE CILOLEUCEL
     Indication: DIFFUSE LARGE B-CELL LYMPHOMA
     Dosage: FORMULATION: INFUSION
     Route: 065
  5. CYCLOPHOSPHAMIDE. [Concomitant]
     Active Substance: CYCLOPHOSPHAMIDE
     Indication: DIFFUSE LARGE B-CELL LYMPHOMA
     Dosage: AS PART OF RCHOP REGIMEN; RECEIVED 10 CYCLES
     Route: 065
  6. DOXORUBICIN [Suspect]
     Active Substance: DOXORUBICIN
     Indication: DIFFUSE LARGE B-CELL LYMPHOMA
     Dosage: AS PART OF RCHOP REGIMEN; RECEIVED 10 CYCLES (TOTAL EXPOSURE: }500MG/M2)
     Route: 065
  7. PREDNISONE. [Concomitant]
     Active Substance: PREDNISONE
     Indication: DIFFUSE LARGE B-CELL LYMPHOMA
     Dosage: AS PART OF RCHOP REGIMEN; RECEIVED 10 CYCLES
     Route: 065
  8. FUROSEMIDE. [Concomitant]
     Active Substance: FUROSEMIDE
     Indication: CARDIOMYOPATHY
     Route: 065
  9. METOPROLOL SUCCINATE. [Concomitant]
     Active Substance: METOPROLOL SUCCINATE
     Indication: CARDIOMYOPATHY
     Dosage: 12.5 MILLIGRAM DAILY;
     Route: 065

REACTIONS (11)
  - Non-cardiogenic pulmonary oedema [Fatal]
  - Atrial flutter [Fatal]
  - Cardiomyopathy [Fatal]
  - Cardiac arrest [Fatal]
  - Hypotension [Fatal]
  - Pulmonary oedema [Fatal]
  - Cytokine release syndrome [Fatal]
  - Cardiogenic shock [Fatal]
  - Cardiac failure acute [Fatal]
  - Ventricular tachycardia [Fatal]
  - Respiratory failure [Fatal]
